FAERS Safety Report 11076338 (Version 3)
Quarter: 2018Q3

REPORT INFORMATION
  Report Type: Spontaneous
  Country: US (occurrence: US)
  Receive Date: 20150429
  Receipt Date: 20180802
  Transmission Date: 20181010
  Serious: Yes (Disabling, Other)
  Sender: FDA-Public Use
  Company Number: US-PFIZER INC-2015141539

PATIENT
  Age: 52 Year
  Sex: Male
  Weight: 105 kg

DRUGS (1)
  1. VIAGRA [Suspect]
     Active Substance: SILDENAFIL CITRATE
     Indication: ERECTILE DYSFUNCTION
     Dosage: 200 MG, DAILY
     Route: 048

REACTIONS (4)
  - Drug ineffective [Unknown]
  - Product use issue [Unknown]
  - Cerebrovascular accident [Unknown]
  - Accident at work [Unknown]

NARRATIVE: CASE EVENT DATE: 2011
